FAERS Safety Report 8110386-2 (Version None)
Quarter: 2012Q1

REPORT INFORMATION
  Report Type: 
  Country: None (occurrence: None)
  Receive Date: 20120202
  Receipt Date: 20120127
  Transmission Date: 20120608
  Serious: Yes (Other)
  Sender: FDA-Public Use
  Company Number: US-ASTRAZENECA-2012SE05848

PATIENT
  Age: 67 Year
  Sex: Male
  Weight: 83.9 kg

DRUGS (5)
  1. SEROQUEL XR [Suspect]
     Indication: AUTISM
     Route: 048
     Dates: start: 20050101
  2. SEROQUEL XR [Suspect]
     Indication: ABNORMAL BEHAVIOUR
     Route: 048
     Dates: start: 20050101
  3. ALPRAZOLAM [Concomitant]
     Indication: AUTISM
  4. PARXETINE HCL [Concomitant]
     Indication: AUTISM
  5. ATORVASTATIN [Concomitant]
     Indication: BLOOD CHOLESTEROL ABNORMAL

REACTIONS (2)
  - NEOPLASM MALIGNANT [None]
  - OFF LABEL USE [None]
